FAERS Safety Report 18897169 (Version 1)
Quarter: 2021Q1

REPORT INFORMATION
  Report Type: Spontaneous
  Country: US (occurrence: US)
  Receive Date: 20210213
  Receipt Date: 20210213
  Transmission Date: 20210420
  Serious: Yes (Hospitalization)
  Sender: FDA-Public Use
  Company Number: None

PATIENT
  Age: 30 Year
  Sex: Female
  Weight: 152 kg

DRUGS (3)
  1. ONDANSETRON [Concomitant]
     Active Substance: ONDANSETRON
     Dates: start: 20210206, end: 20210209
  2. BAMLANIVIMAB. [Suspect]
     Active Substance: BAMLANIVIMAB
     Indication: COVID-19
     Dosage: ?          OTHER FREQUENCY:ONCE;?
     Route: 041
     Dates: start: 20210122, end: 20210122
  3. MORPHINE [Concomitant]
     Active Substance: MORPHINE
     Dates: start: 20210206, end: 20210207

REACTIONS (3)
  - Cholelithiasis [None]
  - Hepatic steatosis [None]
  - Hepatomegaly [None]

NARRATIVE: CASE EVENT DATE: 20210206
